FAERS Safety Report 26109052 (Version 1)
Quarter: 2025Q4

REPORT INFORMATION
  Report Type: Spontaneous
  Country: EU (occurrence: EU)
  Receive Date: 20251201
  Receipt Date: 20251201
  Transmission Date: 20260117
  Serious: Yes (Life-Threatening)
  Sender: PFIZER
  Company Number: EU-PFIZER INC-PV202500138886

PATIENT
  Age: 67 Year
  Sex: Male

DRUGS (4)
  1. INFLIXIMAB [Suspect]
     Active Substance: INFLIXIMAB
     Indication: Colitis ulcerative
     Dosage: 400 MG
     Route: 042
     Dates: start: 202204, end: 20231108
  2. ACETAMINOPHEN [Concomitant]
     Active Substance: ACETAMINOPHEN
     Indication: Pain
     Dosage: UNK
     Dates: start: 20210204
  3. ASPIRIN [Concomitant]
     Active Substance: ASPIRIN
     Indication: Dry eye
     Dosage: UNK
     Dates: start: 20230929
  4. PANTOPRAZOLE SODIUM [Concomitant]
     Active Substance: PANTOPRAZOLE SODIUM
     Indication: Gastric ulcer helicobacter
     Dosage: UNK
     Dates: start: 20211213

REACTIONS (9)
  - Dizziness [Recovered/Resolved]
  - Hot flush [Unknown]
  - Syncope [Recovered/Resolved]
  - Pyrexia [Recovered/Resolved]
  - Skin discolouration [Unknown]
  - Eye movement disorder [Unknown]
  - Cold sweat [Unknown]
  - Drug hypersensitivity [Recovered/Resolved]
  - Chills [Unknown]

NARRATIVE: CASE EVENT DATE: 20230101
